FAERS Safety Report 9322587 (Version 1)
Quarter: 2013Q2

REPORT INFORMATION
  Report Type: Spontaneous
  Country: GB (occurrence: GB)
  Receive Date: 20130531
  Receipt Date: 20130531
  Transmission Date: 20140414
  Serious: Yes (Hospitalization, Other)
  Sender: FDA-Public Use
  Company Number: GB-ASTRAZENECA-2013SE36969

PATIENT
  Sex: Female

DRUGS (2)
  1. ACCOLATE [Suspect]
     Route: 048
  2. ACCOLATE [Suspect]
     Route: 050

REACTIONS (2)
  - Pneumonia [Unknown]
  - Off label use [Unknown]
